FAERS Safety Report 5135207-1 (Version None)
Quarter: 2006Q4

REPORT INFORMATION
  Report Type: 
  Country: None (occurrence: None)
  Receive Date: 20061026
  Receipt Date: 20061013
  Transmission Date: 20070319
  Serious: Yes (Other)
  Sender: FDA-Public Use
  Company Number: US-JNJFOC-20061003173

PATIENT
  Sex: Female
  Weight: 60.33 kg

DRUGS (11)
  1. FENTANYL TRANSDERMAL SYSTEM [Suspect]
     Indication: BACK PAIN
     Route: 062
  2. FORTEO [Concomitant]
     Route: 058
  3. HUMALOG [Concomitant]
     Indication: DIABETES MELLITUS
     Dosage: TO SLIDING SCALE
     Route: 058
  4. LANTUS [Concomitant]
     Indication: DIABETES MELLITUS
     Dosage: TO SLIDING SCALE
     Route: 058
  5. SYNTHROID [Concomitant]
     Indication: HYPOTHYROIDISM
     Route: 048
  6. PLAQUENIL [Concomitant]
     Dosage: EVENING ONLY
     Route: 048
  7. PLAQUENIL [Concomitant]
     Indication: ARTHRITIS
     Dosage: MORNING ONLY
     Route: 048
  8. ZOCOR [Concomitant]
     Route: 048
  9. AMITRIPTYLINC [Concomitant]
     Route: 048
  10. B-12 [Concomitant]
     Indication: PERNICIOUS ANAEMIA
     Route: 050
  11. PRIMIDONE [Concomitant]
     Indication: TREMOR
     Route: 048

REACTIONS (4)
  - BLOOD GLUCOSE DECREASED [None]
  - DIZZINESS [None]
  - HEADACHE [None]
  - VOMITING [None]
